FAERS Safety Report 9891608 (Version 1)
Quarter: 2014Q1

REPORT INFORMATION
  Report Type: Spontaneous
  Country: US (occurrence: None)
  Receive Date: 20140211
  Receipt Date: 20140211
  Transmission Date: 20141002
  Serious: Yes (Hospitalization)
  Sender: FDA-Public Use
  Company Number: None

PATIENT
  Age: 58 Year
  Sex: Male
  Weight: 95 kg

DRUGS (9)
  1. WARFARIN [Suspect]
     Indication: DEEP VEIN THROMBOSIS
     Dates: start: 20111004, end: 20111008
  2. ERYTHROMYCIN [Concomitant]
  3. INSULIN [Concomitant]
  4. POTASSIUM CHLORIDE [Concomitant]
  5. QUETIAPINE [Concomitant]
  6. METOPROLOL [Concomitant]
  7. TRAZODONE [Concomitant]
  8. OXYCODONE [Concomitant]
  9. HEPARIN [Concomitant]

REACTIONS (1)
  - Gastrointestinal haemorrhage [None]
